FAERS Safety Report 20150360 (Version 4)
Quarter: 2022Q2

REPORT INFORMATION
  Report Type: Report from Study
  Country: DE (occurrence: None)
  Receive Date: 20211206
  Receipt Date: 20220402
  Transmission Date: 20220721
  Serious: Yes (Hospitalization)
  Sender: FDA-Public Use
  Company Number: DE-ROCHE-2967106

PATIENT
  Age: 77 Year
  Sex: Female
  Weight: 80 kg

DRUGS (16)
  1. ATEZOLIZUMAB [Suspect]
     Active Substance: ATEZOLIZUMAB
     Indication: Triple negative breast cancer
     Dosage: LAST DOSE PRIOR TO SAE:28/OCT/2021
     Route: 041
     Dates: start: 20211007
  2. PACLITAXEL [Suspect]
     Active Substance: PACLITAXEL
     Indication: Triple negative breast cancer
     Dosage: LAST DOSE PRIOR TO SAE: 04/NOV/2021?ON 18/NOV/2021, THERAPY WITH PACLITAXEL WAS RESTARTED.?DOSE REDU
     Route: 042
     Dates: start: 20211007, end: 20211111
  3. CARBOPLATIN [Suspect]
     Active Substance: CARBOPLATIN
     Indication: Triple negative breast cancer
     Dosage: LAST DOSE PRIOR TO SAE:04/NOV/2021?ON 18/NOV/2021, THERAPY WITH CARBOPLATIN WAS RESTARTED.?DOSE REDU
     Route: 042
     Dates: start: 20211007, end: 20211111
  4. SIMVASTATIN [Concomitant]
     Active Substance: SIMVASTATIN
     Dates: start: 2005
  5. LEVOTHYROXINE [Concomitant]
     Active Substance: LEVOTHYROXINE
     Dates: start: 1999
  6. BISOPROLOL [Concomitant]
     Active Substance: BISOPROLOL
     Dates: start: 2005
  7. HAWTHORN EXTRACT [Concomitant]
  8. LOSARTAN [Concomitant]
     Active Substance: LOSARTAN
     Dates: start: 2005
  9. DEXAMETHASONE [Concomitant]
     Active Substance: DEXAMETHASONE
     Dates: start: 20211007
  10. GRANISETRON [Concomitant]
     Active Substance: GRANISETRON
     Dates: start: 20211007
  11. DIMETHINDENE MALEATE [Concomitant]
     Active Substance: DIMETHINDENE MALEATE
     Dates: start: 20211007
  12. CIMETIDINE [Concomitant]
     Active Substance: CIMETIDINE
     Dates: start: 20211007
  13. CHLORHEXIDINE [Concomitant]
     Active Substance: CHLORHEXIDINE
     Dates: start: 20211028
  14. AMPHO-MORONAL [Concomitant]
     Active Substance: AMPHOTERICIN B
     Dosage: 100 MG/ML
     Dates: start: 20211028
  15. DEXPANTHENOL [Concomitant]
     Active Substance: DEXPANTHENOL
  16. AMINO ACIDS\DEXTROSE\ELECTROLYTES NOS\SOYBEAN OIL [Concomitant]
     Active Substance: AMINO ACIDS\DEXTROSE\ELECTROLYTES NOS\SOYBEAN OIL
     Dates: start: 20211112, end: 20211115

REACTIONS (2)
  - Dysphagia [Recovered/Resolved]
  - Dysgeusia [Recovering/Resolving]

NARRATIVE: CASE EVENT DATE: 20211111
